FAERS Safety Report 7405451-9 (Version None)
Quarter: 2011Q2

REPORT INFORMATION
  Report Type: 
  Country: None (occurrence: None)
  Receive Date: 20110401
  Receipt Date: 20110322
  Transmission Date: 20111010
  Serious: Yes (Other)
  Sender: FDA-Public Use
  Company Number: 1000019390

PATIENT
  Age: 52 Year
  Sex: Female

DRUGS (2)
  1. NAVELBINE (VINORELBINE) (VINORELBINE) [Concomitant]
  2. LEXAPRO [Suspect]
     Indication: DEPRESSION
     Dosage: 10 MG (10 MG, 1 IN 1 D), ORAL
     Route: 048
     Dates: start: 20100101, end: 20110101

REACTIONS (1)
  - GLAUCOMA [None]
